FAERS Safety Report 17287234 (Version 1)
Quarter: 2020Q1

REPORT INFORMATION
  Report Type: Report from Study
  Country: TH (occurrence: TH)
  Receive Date: 20200120
  Receipt Date: 20200120
  Transmission Date: 20200409
  Serious: Yes (Other)
  Sender: FDA-Public Use
  Company Number: TH-ROCHE-2524687

PATIENT

DRUGS (2)
  1. MYCOPHENOLATE MOFETIL. [Suspect]
     Active Substance: MYCOPHENOLATE MOFETIL
     Indication: PEMPHIGUS
     Route: 065
  2. PREDNISOLONE. [Suspect]
     Active Substance: PREDNISOLONE
     Indication: PEMPHIGUS
     Route: 065

REACTIONS (10)
  - Herpes zoster [Unknown]
  - Hyperglycaemia [Unknown]
  - Deep vein thrombosis [Unknown]
  - Cellulitis [Unknown]
  - Hepatitis [Unknown]
  - Upper respiratory tract infection [Unknown]
  - Eczema herpeticum [Unknown]
  - Pneumonia [Unknown]
  - Oral candidiasis [Unknown]
  - Diarrhoea [Unknown]
